FAERS Safety Report 25612349 (Version 1)
Quarter: 2025Q3

REPORT INFORMATION
  Report Type: Spontaneous
  Country: US (occurrence: US)
  Receive Date: 20250728
  Receipt Date: 20250728
  Transmission Date: 20251021
  Serious: Yes (Hospitalization)
  Sender: PFIZER
  Company Number: US-PFIZER INC-202500150284

PATIENT
  Age: 76 Year
  Sex: Female

DRUGS (2)
  1. CIBINQO [Suspect]
     Active Substance: ABROCITINIB
     Indication: Rash
     Dosage: 100 MG, 1X/DAY, (SAMPLE)
  2. CIBINQO [Suspect]
     Active Substance: ABROCITINIB
     Indication: Psoriasis

REACTIONS (2)
  - Pulmonary thrombosis [Unknown]
  - Off label use [Unknown]
